FAERS Safety Report 15986539 (Version 2)
Quarter: 2019Q3

REPORT INFORMATION
  Report Type: Spontaneous
  Country: FR (occurrence: FR)
  Receive Date: 20190220
  Receipt Date: 20190823
  Transmission Date: 20191004
  Serious: Yes (Hospitalization, Other)
  Sender: FDA-Public Use
  Company Number: FR-MYLANLABS-2018M1027361

PATIENT
  Age: 66 Year
  Sex: Male

DRUGS (18)
  1. LANSOPRAZOLE MYLAN [Suspect]
     Active Substance: LANSOPRAZOLE
     Indication: PEPTIC ULCER
     Dosage: 30 MILLIGRAM, QD
     Route: 048
     Dates: start: 20180206, end: 20180214
  2. RIFADINE                           /00146901/ [Suspect]
     Active Substance: RIFAMPIN
     Indication: INTERVERTEBRAL DISCITIS
     Dosage: 1200 MILLIGRAM, QD (2-0-2)
     Route: 048
     Dates: start: 20180129, end: 20180207
  3. RIFADINE                           /00146901/ [Suspect]
     Active Substance: RIFAMPIN
     Dosage: 300 MILLIGRAM, QD
     Route: 048
     Dates: start: 20180129, end: 20180207
  4. TAVANIC [Suspect]
     Active Substance: LEVOFLOXACIN
     Dosage: 500 MILLIGRAM, QD (1-0-1   )
     Route: 048
     Dates: start: 20180129, end: 20180205
  5. CALCIPARINE [Suspect]
     Active Substance: HEPARIN CALCIUM
     Indication: EMBOLISM VENOUS
     Dosage: 20000 INTERNATIONAL UNIT
     Route: 058
     Dates: start: 20180214
  6. VANCOMYCINE SANDOZ [Suspect]
     Active Substance: VANCOMYCIN
     Dosage: 1750 MILLIGRAM, QD
     Route: 048
     Dates: start: 20180121, end: 20180124
  7. DUOTRAV [Suspect]
     Active Substance: TIMOLOL MALEATE\TRAVOPROST
     Indication: GLAUCOMA
     Dosage: 1 GOUTTE MATIN ET SOIR (2 YEUX)
     Route: 047
     Dates: start: 20180122, end: 20180214
  8. OFLOCET                            /00731801/ [Suspect]
     Active Substance: OFLOXACIN
     Indication: URINARY TRACT INFECTION
     Dosage: UNK (NON RENSEIGN?E)
     Route: 048
     Dates: start: 20180109, end: 20180116
  9. HEPARINE SODIQUE [Suspect]
     Active Substance: HEPARIN SODIUM
     Indication: EMBOLISM VENOUS
     Dosage: PLUSIEURS POSOLOGIES DE 60000 UI/JOUR ? 25000 UI/JOUR
     Route: 058
     Dates: start: 20180129, end: 20180214
  10. MOVICOL [Suspect]
     Active Substance: POLYETHYLENE GLYCOL 3350\POTASSIUM CHLORIDE\SODIUM BICARBONATE\SODIUM CHLORIDE
     Indication: CONSTIPATION
     Dosage: 10 GRAM (1-0-0)
     Route: 048
     Dates: end: 20180214
  11. VANCOMYCINE SANDOZ [Suspect]
     Active Substance: VANCOMYCIN
     Indication: INTERVERTEBRAL DISCITIS
     Dosage: 3500 MILLIGRAM, QD
     Route: 048
     Dates: start: 20180121, end: 20180124
  12. LOVENOX [Suspect]
     Active Substance: ENOXAPARIN SODIUM
     Indication: EMBOLISM VENOUS
     Dosage: 4000 INTERNATIONAL UNIT
     Route: 058
     Dates: start: 20180118, end: 20180129
  13. PANTOPRAZOLE [Suspect]
     Active Substance: PANTOPRAZOLE
     Indication: GASTROINTESTINAL HAEMORRHAGE
     Dosage: 8 MILLIGRAM, QH
     Route: 042
     Dates: start: 20180202, end: 20180205
  14. DUOTRAV [Suspect]
     Active Substance: TIMOLOL MALEATE\TRAVOPROST
     Dosage: 1 DROP(DRP] (DROP (1/12 MILLILITRE1 GOUTTE MATIN ET SOIR (2 YEUX)
     Route: 047
     Dates: start: 20180122, end: 20180214
  15. ERYTHROMYCINE                      /00020901/ [Suspect]
     Active Substance: ERYTHROMYCIN
     Indication: INTERVERTEBRAL DISCITIS
     Dosage: 250 MILLIGRAM
     Route: 042
     Dates: start: 20180202, end: 20180202
  16. TAVANIC [Suspect]
     Active Substance: LEVOFLOXACIN
     Indication: INTERVERTEBRAL DISCITIS
     Dosage: 1000 MILLIGRAM (1-0-1)
     Route: 048
     Dates: start: 20180129, end: 20180205
  17. TAZOCILLINE [Suspect]
     Active Substance: PIPERACILLIN SODIUM\TAZOBACTAM SODIUM
     Indication: INTERVERTEBRAL DISCITIS
     Dosage: 3 DOSAGE FORM, QD
     Route: 042
     Dates: start: 20180121, end: 20180128
  18. LASILIX SPECIAL                    /00032601/ [Suspect]
     Active Substance: FUROSEMIDE
     Indication: INTERVERTEBRAL DISCITIS
     Dosage: 80 MILLIGRAM, QD
     Route: 042
     Dates: start: 20180203, end: 20180205

REACTIONS (1)
  - Drug reaction with eosinophilia and systemic symptoms [Recovered/Resolved]

NARRATIVE: CASE EVENT DATE: 20180126
